FAERS Safety Report 9039434 (Version 1)
Quarter: 2013Q1

REPORT INFORMATION
  Report Type: Spontaneous
  Country: US (occurrence: None)
  Receive Date: 20130123
  Receipt Date: 20130123
  Transmission Date: 20140127
  Serious: Yes (Other)
  Sender: FDA-Public Use
  Company Number: None

PATIENT
  Sex: Female
  Weight: 72.58 kg

DRUGS (1)
  1. DEXTROAMPHETAMINE [Suspect]
     Indication: MAJOR DEPRESSION
     Dosage: 30MG TWO TID BY MOUTH
     Route: 048
     Dates: start: 20121207, end: 20121227

REACTIONS (1)
  - Drug ineffective [None]
